FAERS Safety Report 10167602 (Version 1)
Quarter: 2014Q2

REPORT INFORMATION
  Report Type: Spontaneous
  Country: CH (occurrence: CH)
  Receive Date: 20140512
  Receipt Date: 20140512
  Transmission Date: 20141212
  Serious: Yes (Hospitalization)
  Sender: FDA-Public Use
  Company Number: PHHY2014CH056351

PATIENT
  Age: 63 Year
  Sex: Male
  Weight: 66 kg

DRUGS (7)
  1. CLOPIN ECO [Suspect]
     Indication: PSYCHOTIC DISORDER
     Dosage: 1 DF, BID
     Route: 048
     Dates: start: 20140317
  2. CLOPIN ECO [Interacting]
     Dosage: 200 MG, UNK
     Dates: start: 20140329, end: 20140331
  3. CYMBALTA [Interacting]
     Indication: DEPRESSION
     Dosage: 60 MG, QD
     Route: 048
     Dates: start: 201309, end: 20140331
  4. TEMESTA [Suspect]
     Indication: ANXIETY
     Dosage: 1 MG, QD
     Route: 048
     Dates: end: 20140331
  5. CLOPIXOL [Concomitant]
     Dosage: 20 MG, BID
     Route: 048
     Dates: start: 20140311, end: 20140325
  6. AUGMENTIN [Concomitant]
     Dosage: 625 MG, TID
     Route: 048
     Dates: start: 20140326, end: 20140402
  7. TROSPIUM [Concomitant]
     Dosage: 20 MG, BID
     Route: 048

REACTIONS (5)
  - Encephalopathy [Unknown]
  - Hypotension [Recovering/Resolving]
  - Tachycardia [Recovering/Resolving]
  - Electrocardiogram QT prolonged [Recovering/Resolving]
  - Prescribed overdose [Recovered/Resolved]
